FAERS Safety Report 6614947-9 (Version None)
Quarter: 2010Q1

REPORT INFORMATION
  Report Type: 
  Country: None (occurrence: None)
  Receive Date: 20100305
  Receipt Date: 20100224
  Transmission Date: 20100710
  Serious: Yes (Hospitalization, Other)
  Sender: FDA-Public Use
  Company Number: AU-ASTRAZENECA-2010SE08084

PATIENT
  Age: 10121 Day
  Sex: Female

DRUGS (7)
  1. QUETIAPINE [Suspect]
     Indication: PSYCHOTIC DISORDER
     Dosage: 400-1200 MG/DAILY
     Route: 048
  2. ZOLOFT [Suspect]
     Indication: ANTIDEPRESSANT THERAPY
     Dosage: 50-100 MG/DAILY
     Route: 048
  3. METFORMIN HCL [Concomitant]
     Indication: TYPE 2 DIABETES MELLITUS
     Route: 048
  4. BLACKMORES PREGNANCY AND BREASTFEEDING FORMULA [Concomitant]
     Indication: SUPPLEMENTATION THERAPY
     Dosage: 1-2 TABLETS DAILY
     Route: 048
  5. FEFOL [Concomitant]
     Indication: MINERAL SUPPLEMENTATION
     Dosage: 1 TABLET DAILY
     Route: 048
  6. VITAMIN C [Concomitant]
     Indication: VITAMIN SUPPLEMENTATION
     Dosage: 1 TABLET DAILY
     Route: 048
  7. ACETAMINOPHEN W/ CODEINE [Concomitant]
     Indication: PROLACTINOMA
     Dosage: 1-2 TABLETS TDS AS REQUIRED
     Route: 048

REACTIONS (7)
  - CAESAREAN SECTION [None]
  - CYSTITIS [None]
  - DEPRESSED LEVEL OF CONSCIOUSNESS [None]
  - DRUG EXPOSURE DURING PREGNANCY [None]
  - MENTAL DISORDER [None]
  - POSTOPERATIVE WOUND INFECTION [None]
  - STRESS [None]
